FAERS Safety Report 5771770-5 (Version None)
Quarter: 2008Q2

REPORT INFORMATION
  Report Type: 
  Country: None (occurrence: None)
  Receive Date: 20080613
  Receipt Date: 20080604
  Transmission Date: 20081010
  Serious: Yes (Hospitalization)
  Sender: FDA-Public Use
  Company Number: US-ROCHE-493012

PATIENT
  Sex: Female
  Weight: 49.9 kg

DRUGS (10)
  1. BONIVA [Suspect]
     Indication: OSTEOPOROSIS
     Route: 048
     Dates: start: 20070101
  2. IRON SUPPLEMENT [Suspect]
     Indication: ANAEMIA
     Route: 065
  3. MULTIVITAMIN NOS [Concomitant]
  4. DYAZIDE [Concomitant]
     Dosage: REPORTED AS ^DIAZIDE^
  5. DYAZIDE [Concomitant]
     Dosage: REPORTED AS ^DIAZIDE^
  6. ASPIRIN [Concomitant]
     Dosage: DRUG REPORTED AS BABY ASPIRIN
  7. HYDROCODONE [Concomitant]
  8. XANAX [Concomitant]
  9. MICARDIS HCT [Concomitant]
     Indication: HYPERTENSION
  10. MICARDIS HCT [Concomitant]

REACTIONS (8)
  - ANAEMIA [None]
  - CARDIAC DISORDER [None]
  - CHEST PAIN [None]
  - DECREASED APPETITE [None]
  - DYSPEPSIA [None]
  - ROAD TRAFFIC ACCIDENT [None]
  - STERNAL FRACTURE [None]
  - STOMACH DISCOMFORT [None]
